FAERS Safety Report 5754578-6 (Version None)
Quarter: 2008Q2

REPORT INFORMATION
  Report Type: 
  Country: None (occurrence: None)
  Receive Date: 20080530
  Receipt Date: 20080519
  Transmission Date: 20081010
  Serious: Yes (Other)
  Sender: FDA-Public Use
  Company Number: GR-PFIZER INC-2008043204

PATIENT
  Sex: Male

DRUGS (1)
  1. MEDROL [Suspect]

REACTIONS (2)
  - DIZZINESS [None]
  - GAIT DISTURBANCE [None]
